FAERS Safety Report 24326071 (Version 1)
Quarter: 2024Q3

REPORT INFORMATION
  Report Type: Spontaneous
  Country: CN (occurrence: CN)
  Receive Date: 20240917
  Receipt Date: 20240917
  Transmission Date: 20241016
  Serious: Yes (Hospitalization)
  Sender: QILU TIANHE PHARMACEUTICAL
  Company Number: CN-QILU TIANHE PHARMACEUTICAL CO. LTD-QLT-000033-2024

PATIENT
  Age: 68 Year
  Sex: Male

DRUGS (4)
  1. PIPERACILLIN AND TAZOBACTAM [Suspect]
     Active Substance: PIPERACILLIN SODIUM\TAZOBACTAM SODIUM
     Indication: Bronchitis chronic
     Dosage: 4.5 G (QD)
     Route: 041
     Dates: start: 20240908, end: 20240908
  2. PIPERACILLIN AND TAZOBACTAM [Suspect]
     Active Substance: PIPERACILLIN SODIUM\TAZOBACTAM SODIUM
     Indication: Bacterial infection
  3. SODIUM CHLORIDE [Concomitant]
     Active Substance: SODIUM CHLORIDE
     Indication: Bronchitis chronic
     Dosage: 250 ML PER DAY (QD) USED AS A SOLVENT (VEHICLE SOLUTION USE)
     Route: 041
     Dates: start: 20240908, end: 20240908
  4. SODIUM CHLORIDE [Concomitant]
     Active Substance: SODIUM CHLORIDE
     Indication: Bacterial infection

REACTIONS (2)
  - Hypoaesthesia [Not Recovered/Not Resolved]
  - Musculoskeletal stiffness [Not Recovered/Not Resolved]

NARRATIVE: CASE EVENT DATE: 20240908
